FAERS Safety Report 16787644 (Version 2)
Quarter: 2019Q3

REPORT INFORMATION
  Report Type: Spontaneous
  Country: US (occurrence: US)
  Receive Date: 20190909
  Receipt Date: 20190917
  Transmission Date: 20191005
  Serious: No
  Sender: FDA-Public Use
  Company Number: US-JNJFOC-20190903747

PATIENT
  Sex: Female
  Weight: 70.37 kg

DRUGS (1)
  1. SIMPONI ARIA [Suspect]
     Active Substance: GOLIMUMAB
     Indication: RHEUMATOID ARTHRITIS
     Dosage: SIMPONI VIAL 12.50 MG/ML
     Route: 042

REACTIONS (4)
  - Poor quality sleep [Unknown]
  - Lethargy [Unknown]
  - Therapeutic response unexpected [Unknown]
  - Drug ineffective [Unknown]
